FAERS Safety Report 9308045 (Version 2)
Quarter: 2013Q3

REPORT INFORMATION
  Report Type: Report from Study
  Country: ES (occurrence: ES)
  Receive Date: 20130524
  Receipt Date: 20130716
  Transmission Date: 20140515
  Serious: Yes (Hospitalization)
  Sender: FDA-Public Use
  Company Number: ES-SANOFI-AVENTIS-2013SA050525

PATIENT
  Age: 67 Year
  Sex: Female

DRUGS (7)
  1. SEGURIL [Suspect]
     Indication: PRODUCT USED FOR UNKNOWN INDICATION
     Route: 048
     Dates: start: 20091223, end: 20100416
  2. OMEPRAZOLE [Concomitant]
     Route: 048
     Dates: start: 20090403, end: 20100416
  3. SUMIAL [Concomitant]
     Dosage: STRENGTH: 10 MG
     Route: 048
     Dates: start: 20080821, end: 20100416
  4. NOVORAPID [Concomitant]
     Indication: DIABETES MELLITUS
     Dosage: STRENGTH: 100 U/ML
     Route: 058
     Dates: start: 20070608, end: 20100416
  5. NOVOMIX [Concomitant]
     Indication: DIABETES MELLITUS
     Route: 058
     Dates: start: 20070608, end: 20100416
  6. FLEXPEN [Concomitant]
     Route: 058
     Dates: start: 20070608, end: 20100416
  7. VENOSMIL [Concomitant]
     Dosage: STRENGTH: 200 MG
     Route: 048
     Dates: start: 20070107, end: 20100416

REACTIONS (4)
  - Renal failure acute [Recovered/Resolved]
  - Central obesity [Recovered/Resolved]
  - Abdominal pain [Recovered/Resolved]
  - Diarrhoea [Recovered/Resolved]
